FAERS Safety Report 8463909-8 (Version None)
Quarter: 2012Q2

REPORT INFORMATION
  Report Type: 
  Country: None (occurrence: None)
  Receive Date: 20120625
  Receipt Date: 20120620
  Transmission Date: 20120825
  Serious: No
  Sender: FDA-Public Use
  Company Number: US-ASTRAZENECA-2012SE41521

PATIENT
  Age: 50 Year
  Sex: Female

DRUGS (3)
  1. EFFEXOR [Concomitant]
  2. RISPERDAL [Concomitant]
  3. SEROQUEL [Suspect]
     Route: 048

REACTIONS (2)
  - FEELING ABNORMAL [None]
  - DRUG DOSE OMISSION [None]
